FAERS Safety Report 21088328 (Version 1)
Quarter: 2022Q3

REPORT INFORMATION
  Report Type: Spontaneous
  Country: US (occurrence: None)
  Receive Date: 20220715
  Receipt Date: 20220715
  Transmission Date: 20221027
  Serious: Yes (Death)
  Sender: FDA-Public Use
  Company Number: None

PATIENT
  Age: 75 Year
  Sex: Male
  Weight: 64.18 kg

DRUGS (1)
  1. MEMANTINE HYDROCHLORIDE [Suspect]
     Active Substance: MEMANTINE HYDROCHLORIDE
     Dates: end: 20220617

REACTIONS (13)
  - Fall [None]
  - Metastases to central nervous system [None]
  - Tumour excision [None]
  - Asthenia [None]
  - Fatigue [None]
  - Hypophagia [None]
  - Confusional state [None]
  - Back pain [None]
  - Failure to thrive [None]
  - Metastases to meninges [None]
  - Oedema [None]
  - Hyponatraemia [None]
  - Leukocytosis [None]

NARRATIVE: CASE EVENT DATE: 20220624
